FAERS Safety Report 7006872-9 (Version None)
Quarter: 2010Q3

REPORT INFORMATION
  Report Type: 
  Country: None (occurrence: None)
  Receive Date: 20100922
  Receipt Date: 20100914
  Transmission Date: 20110219
  Serious: No
  Sender: FDA-Public Use
  Company Number: 2009BI015732

PATIENT
  Age: 39 Year
  Sex: Female

DRUGS (1)
  1. TYSABRI [Suspect]
     Indication: MULTIPLE SCLEROSIS
     Route: 042
     Dates: start: 20080725

REACTIONS (11)
  - BLISTER [None]
  - DIZZINESS [None]
  - EYE SWELLING [None]
  - FEELING HOT [None]
  - HERPES ZOSTER [None]
  - LIP SWELLING [None]
  - NIGHT SWEATS [None]
  - ORAL PAIN [None]
  - RASH [None]
  - RHINORRHOEA [None]
  - WEIGHT DECREASED [None]
